FAERS Safety Report 18571904 (Version 1)
Quarter: 2020Q4

REPORT INFORMATION
  Report Type: Spontaneous
  Country: GB (occurrence: GB)
  Receive Date: 20201202
  Receipt Date: 20201202
  Transmission Date: 20210114
  Serious: Yes (Death)
  Sender: FDA-Public Use
  Company Number: GB-PURACAP PHARMACEUTICAL LLC-2020EPC00361

PATIENT
  Age: 19 Year
  Sex: Female

DRUGS (1)
  1. DOXYCYCLINE HYCLATE. [Suspect]
     Active Substance: DOXYCYCLINE HYCLATE
     Indication: MALARIA PROPHYLAXIS
     Route: 065

REACTIONS (1)
  - Psychotic disorder [Fatal]

NARRATIVE: CASE EVENT DATE: 202007
